FAERS Safety Report 6870893-7 (Version None)
Quarter: 2010Q3

REPORT INFORMATION
  Report Type: 
  Country: None (occurrence: None)
  Receive Date: 20100723
  Receipt Date: 20100721
  Transmission Date: 20110219
  Serious: Yes (Death)
  Sender: FDA-Public Use
  Company Number: PHHY2010IN47723

PATIENT
  Age: 62 Year
  Sex: Male

DRUGS (1)
  1. SEBIVO [Suspect]
     Dosage: UNK
     Dates: start: 20100401

REACTIONS (1)
  - MALIGNANT NEOPLASM PROGRESSION [None]
